FAERS Safety Report 7353499-5 (Version None)
Quarter: 2011Q1

REPORT INFORMATION
  Report Type: 
  Country: None (occurrence: None)
  Receive Date: 20110315
  Receipt Date: 20110308
  Transmission Date: 20110831
  Serious: Yes (Disabling)
  Sender: FDA-Public Use
  Company Number: DE-SANOFI-AVENTIS-2011SA003761

PATIENT
  Age: 75 Year
  Sex: Male
  Weight: 83 kg

DRUGS (7)
  1. BELOC ZOK [Concomitant]
     Indication: HYPERTENSION
     Route: 048
  2. ISOSORBIDE DINITRATE [Concomitant]
     Indication: CORONARY ARTERY DISEASE
     Dosage: A HALF OF 20-MG TAB. TWICE DAILY
     Route: 048
  3. MULTAQ [Suspect]
     Indication: ATRIAL FIBRILLATION
     Route: 048
     Dates: start: 20100608
  4. SIMVASTATIN [Interacting]
     Route: 065
     Dates: end: 20110101
  5. COAPROVEL [Concomitant]
     Indication: HYPERTENSION
     Route: 048
  6. MARCUMAR [Concomitant]
     Indication: ATRIAL FIBRILLATION
     Route: 065
  7. LERCANIDIPINE [Concomitant]
     Indication: HYPERTENSION
     Route: 048

REACTIONS (3)
  - DRUG INTERACTION [None]
  - BREAST ENGORGEMENT [None]
  - BLOOD CREATINE PHOSPHOKINASE INCREASED [None]
